FAERS Safety Report 18510485 (Version 2)
Quarter: 2020Q4

REPORT INFORMATION
  Report Type: Spontaneous
  Country: US (occurrence: US)
  Receive Date: 20201117
  Receipt Date: 20201217
  Transmission Date: 20210114
  Serious: No
  Sender: FDA-Public Use
  Company Number: US-009507513-2011USA008593

PATIENT
  Age: 31 Year
  Sex: Female
  Weight: 66.21 kg

DRUGS (2)
  1. NEXPLANON [Suspect]
     Active Substance: ETONOGESTREL
     Indication: CONTRACEPTION
     Dosage: 1 IMPLANT, LEFT ARM, 3 YEARS
     Route: 059
     Dates: start: 20201026
  2. NEXPLANON [Suspect]
     Active Substance: ETONOGESTREL
     Dosage: OLD NEXPLANON
     Route: 059
     Dates: end: 20201026

REACTIONS (2)
  - Medical device site discomfort [Not Recovered/Not Resolved]
  - Implant site pain [Not Recovered/Not Resolved]

NARRATIVE: CASE EVENT DATE: 20201105
